FAERS Safety Report 17194880 (Version 2)
Quarter: 2022Q1

REPORT INFORMATION
  Report Type: Spontaneous
  Country: CH (occurrence: CH)
  Receive Date: 20191224
  Receipt Date: 20220203
  Transmission Date: 20220423
  Serious: Yes (Hospitalization, Disabling, Other)
  Sender: FDA-Public Use
  Company Number: CH-SM-2019-18789

PATIENT
  Age: 56 Year
  Sex: Male

DRUGS (3)
  1. DISULFIRAM [Suspect]
     Active Substance: DISULFIRAM
     Indication: Alcoholism
     Dosage: 800MG P.O. UBER ZWEI 14 TAGE BIS 06.11.2019 (GENAUER THERAPIEBEGINN NICHT BEKANNT)
     Route: 065
     Dates: end: 20191106
  2. CLOBAZAM [Concomitant]
     Active Substance: CLOBAZAM
     Dosage: 0.25-0-0.5
     Route: 065
  3. ZONEGRAN [Concomitant]
     Active Substance: ZONISAMIDE
     Dosage: 3-0-2
     Route: 065

REACTIONS (2)
  - Toxic encephalopathy [Recovering/Resolving]
  - Overdose [Recovering/Resolving]

NARRATIVE: CASE EVENT DATE: 20191101
